FAERS Safety Report 7308170-2 (Version None)
Quarter: 2011Q1

REPORT INFORMATION
  Report Type: 
  Country: None (occurrence: None)
  Receive Date: 20110223
  Receipt Date: 20110209
  Transmission Date: 20110831
  Serious: Yes (Hospitalization)
  Sender: FDA-Public Use
  Company Number: JP-ROCHE-760154

PATIENT
  Age: 34 Year
  Sex: Female

DRUGS (2)
  1. CELLCEPT [Suspect]
     Dosage: NOTE: DOSAGE IS UNCERTAIN
     Route: 065
  2. TACROLIMUS [Concomitant]

REACTIONS (2)
  - TUBULOINTERSTITIAL NEPHRITIS [None]
  - CYTOMEGALOVIRUS INFECTION [None]
